FAERS Safety Report 5898051-3 (Version None)
Quarter: 2008Q3

REPORT INFORMATION
  Report Type: 
  Country: None (occurrence: None)
  Receive Date: 20080904
  Receipt Date: 20080429
  Transmission Date: 20090109
  Serious: Yes (Other)
  Sender: FDA-Public Use
  Company Number: 200813457

PATIENT
  Age: 43 Year
  Sex: Female
  Weight: 58.0604 kg

DRUGS (1)
  1. CARIMUNE [Suspect]
     Indication: MULTIPLE SCLEROSIS
     Dosage: 50 G DAILY IV
     Route: 042
     Dates: start: 20080424, end: 20080425

REACTIONS (4)
  - FEELING HOT [None]
  - HEADACHE [None]
  - MYALGIA [None]
  - NAUSEA [None]
